FAERS Safety Report 12312537 (Version 1)
Quarter: 2016Q2

REPORT INFORMATION
  Report Type: Report from Study
  Country: CA (occurrence: CA)
  Receive Date: 20160428
  Receipt Date: 20160428
  Transmission Date: 20160815
  Serious: Yes (Hospitalization)
  Sender: FDA-Public Use
  Company Number: CA-ROCHE-1723092

PATIENT
  Age: 73 Year
  Sex: Male

DRUGS (18)
  1. COLACE [Concomitant]
     Active Substance: DOCUSATE SODIUM
     Dosage: AS REQUIRED
     Route: 065
  2. DILANTIN [Concomitant]
     Active Substance: PHENYTOIN
  3. ACTONEL [Concomitant]
     Active Substance: RISEDRONATE SODIUM
  4. ASPIRIN. [Concomitant]
     Active Substance: ASPIRIN
  5. FRAGMIN [Concomitant]
     Active Substance: DALTEPARIN SODIUM
  6. RITUXAN [Suspect]
     Active Substance: RITUXIMAB
     Dosage: RPAP; WEEKLY X 4
     Route: 042
     Dates: start: 20160329
  7. SEEBRI [Concomitant]
     Active Substance: GLYCOPYRRONIUM
  8. VENTOLIN [Concomitant]
     Active Substance: ALBUTEROL SULFATE
  9. STATEX (CANADA) [Concomitant]
     Active Substance: MORPHINE SULFATE
  10. CELEXA [Concomitant]
     Active Substance: CITALOPRAM HYDROBROMIDE
  11. SEPTRA [Concomitant]
     Active Substance: SULFAMETHOXAZOLE\TRIMETHOPRIM
  12. PARIET [Concomitant]
     Active Substance: RABEPRAZOLE SODIUM
  13. SENOKOT [Concomitant]
     Active Substance: SENNOSIDES
     Dosage: AS REQUIRED
     Route: 065
  14. PREDNISONE. [Concomitant]
     Active Substance: PREDNISONE
  15. RITUXAN [Suspect]
     Active Substance: RITUXIMAB
     Indication: AUTOIMMUNE HAEMOLYTIC ANAEMIA
     Dosage: BEFORE RPAP
     Route: 042
     Dates: start: 2014
  16. STEMETIL [Concomitant]
     Active Substance: PROCHLORPERAZINE MALEATE
  17. ELTROXIN [Concomitant]
     Active Substance: LEVOTHYROXINE
  18. FOLIC ACID. [Concomitant]
     Active Substance: FOLIC ACID
     Route: 065

REACTIONS (3)
  - Hypersensitivity [Unknown]
  - Diarrhoea [Unknown]
  - Vomiting [Unknown]

NARRATIVE: CASE EVENT DATE: 2014
